FAERS Safety Report 13412758 (Version 3)
Quarter: 2020Q1

REPORT INFORMATION
  Report Type: Spontaneous
  Country: US (occurrence: US)
  Receive Date: 20170406
  Receipt Date: 20200123
  Transmission Date: 20200409
  Serious: No
  Sender: FDA-Public Use
  Company Number: US-JNJFOC-20170310806

PATIENT
  Sex: Male

DRUGS (13)
  1. RISPERDAL [Suspect]
     Active Substance: RISPERIDONE
     Route: 048
     Dates: start: 20070117, end: 20090902
  2. RISPERIDONE. [Suspect]
     Active Substance: RISPERIDONE
     Indication: FRAGILE X SYNDROME
  3. ZYPREXA [Suspect]
     Active Substance: OLANZAPINE
     Indication: SCHIZOPHRENIA
     Route: 065
     Dates: start: 2010, end: 2015
  4. RISPERDAL [Suspect]
     Active Substance: RISPERIDONE
     Indication: FRAGILE X SYNDROME
     Route: 048
     Dates: start: 20021230, end: 20050829
  5. RISPERIDONE. [Suspect]
     Active Substance: RISPERIDONE
     Indication: AUTISM SPECTRUM DISORDER
     Dosage: VARYING DOSES 01, 02, 03 MG
     Route: 048
     Dates: start: 20091021, end: 20130611
  6. RISPERDAL [Suspect]
     Active Substance: RISPERIDONE
     Indication: AUTISM SPECTRUM DISORDER
     Dosage: VARYING DOSES 0.25, 0.5,01, 02 MG AND FREQUENCIES
     Route: 048
     Dates: start: 19981109, end: 20020619
  7. RISPERIDONE. [Suspect]
     Active Substance: RISPERIDONE
     Indication: AUTISM SPECTRUM DISORDER
     Route: 048
     Dates: start: 20100208
  8. RISPERDAL [Suspect]
     Active Substance: RISPERIDONE
     Route: 048
     Dates: start: 20130712, end: 20131010
  9. RISPERDAL [Suspect]
     Active Substance: RISPERIDONE
     Indication: FRAGILE X SYNDROME
     Dosage: 01 CUBIC CENTIMETER (CC)
     Route: 048
     Dates: start: 20000417
  10. RISPERIDONE. [Suspect]
     Active Substance: RISPERIDONE
     Indication: FRAGILE X SYNDROME
     Route: 048
     Dates: start: 20131120, end: 20160512
  11. RISPERDAL [Suspect]
     Active Substance: RISPERIDONE
     Route: 048
     Dates: start: 20060814
  12. RISPERDAL [Suspect]
     Active Substance: RISPERIDONE
     Route: 048
     Dates: start: 20100304, end: 20100812
  13. RISPERDAL [Suspect]
     Active Substance: RISPERIDONE
     Indication: AUTISM SPECTRUM DISORDER

REACTIONS (4)
  - Therapy cessation [Unknown]
  - Gynaecomastia [Unknown]
  - Emotional distress [Unknown]
  - Drug ineffective [Unknown]
